FAERS Safety Report 8952491 (Version 2)
Quarter: 2012Q4

REPORT INFORMATION
  Report Type: 
  Country: US (occurrence: US)
  Receive Date: 20121205
  Receipt Date: 20121217
  Transmission Date: 20130627
  Serious: Yes (Hospitalization, Disabling)
  Sender: FDA-Public Use
  Company Number: US-BAYER-2012-126009

PATIENT
  Age: 25 Year
  Sex: Female
  Weight: 113.38 kg

DRUGS (5)
  1. YASMIN [Suspect]
     Dosage: UNK
     Dates: start: 200204, end: 20051019
  2. NASONEX [Concomitant]
     Dosage: UNK
     Dates: start: 20050915
  3. AUGMENTIN [Concomitant]
  4. TYLENOL [Concomitant]
     Indication: HEADACHE
  5. ADVIL [Concomitant]
     Indication: HEADACHE

REACTIONS (16)
  - Intracranial venous sinus thrombosis [Recovered/Resolved]
  - Haemorrhage in pregnancy [None]
  - Headache [Recovered/Resolved]
  - Stress [None]
  - Mental disorder [None]
  - General physical health deterioration [Recovered/Resolved]
  - Weight increased [Recovered/Resolved]
  - Fear [None]
  - Anxiety [None]
  - Dizziness [Recovered/Resolved]
  - Pain [Recovered/Resolved]
  - Injury [Recovered/Resolved]
  - General physical health deterioration [Recovered/Resolved]
  - Anxiety [None]
  - Emotional distress [None]
  - Pain [None]
